FAERS Safety Report 9065265 (Version 3)
Quarter: 2013Q2

REPORT INFORMATION
  Report Type: Spontaneous
  Country: US (occurrence: US)
  Receive Date: 20130128
  Receipt Date: 20130423
  Transmission Date: 20140414
  Serious: Yes (Death, Hospitalization, Other)
  Sender: FDA-Public Use
  Company Number: PHEH2013US002290

PATIENT
  Sex: Female

DRUGS (1)
  1. RECLAST [Suspect]
     Dosage: UNK
     Route: 042
     Dates: start: 201209

REACTIONS (4)
  - Death [Fatal]
  - Metastatic neoplasm [Unknown]
  - Ureteric obstruction [Recovered/Resolved]
  - Renal failure [Recovered/Resolved]
